FAERS Safety Report 6962129-3 (Version None)
Quarter: 2010Q3

REPORT INFORMATION
  Report Type: 
  Country: None (occurrence: None)
  Receive Date: 20100902
  Receipt Date: 20100819
  Transmission Date: 20110219
  Serious: No
  Sender: FDA-Public Use
  Company Number: GB-JNJFOC-20100804824

PATIENT
  Age: 74 Year
  Sex: Female

DRUGS (3)
  1. DURAGESIC-100 [Suspect]
     Indication: PAIN
     Dosage: 75 UG/HR AND 25 UG/HR
     Route: 062
  2. DURAGESIC-100 [Suspect]
     Dosage: 75UG/HR AND 25UG/HR
     Route: 062
  3. ANTIHISTAMINE [Concomitant]
     Indication: PRURITUS
     Route: 065

REACTIONS (5)
  - DIZZINESS [None]
  - HYPERHIDROSIS [None]
  - PRURITUS [None]
  - THERAPEUTIC RESPONSE DECREASED [None]
  - WRONG TECHNIQUE IN DRUG USAGE PROCESS [None]
